FAERS Safety Report 7031482-7 (Version None)
Quarter: 2010Q4

REPORT INFORMATION
  Report Type: 
  Country: None (occurrence: None)
  Receive Date: 20101005
  Receipt Date: 20101005
  Transmission Date: 20110411
  Serious: Yes (Hospitalization)
  Sender: FDA-Public Use
  Company Number: None

PATIENT
  Sex: Female
  Weight: 59.5 kg

DRUGS (2)
  1. CISPLATIN [Suspect]
     Dosage: 120 MG
     Dates: end: 20100913
  2. ETOPOSIDE [Suspect]
     Dosage: 480 MG
     Dates: end: 20100915

REACTIONS (4)
  - DEHYDRATION [None]
  - FEBRILE NEUTROPENIA [None]
  - HYPOTENSION [None]
  - LOBAR PNEUMONIA [None]
